FAERS Safety Report 24366999 (Version 3)
Quarter: 2025Q1

REPORT INFORMATION
  Report Type: Spontaneous
  Country: IN (occurrence: IN)
  Receive Date: 20240926
  Receipt Date: 20250310
  Transmission Date: 20250409
  Serious: Yes (Other)
  Sender: PFIZER
  Company Number: IN-PFIZER INC-PV202400043855

PATIENT
  Age: 54 Year
  Sex: Male
  Weight: 76.2 kg

DRUGS (5)
  1. LORLATINIB [Suspect]
     Active Substance: LORLATINIB
     Indication: Lung neoplasm malignant
     Dosage: 100 MG, 1X/DAY
     Route: 048
     Dates: start: 20240304
  2. ROSUVASTATIN CALCIUM [Concomitant]
     Active Substance: ROSUVASTATIN CALCIUM
     Dosage: 10 MG, 1X/DAY, HS
  3. PREGABA-M [Concomitant]
     Dosage: 75 MG, 1X/DAY, HS X 2 MONTHS
  4. LASIX [Concomitant]
     Active Substance: FUROSEMIDE
  5. ZOLASTA [Concomitant]

REACTIONS (3)
  - Body mass index increased [Unknown]
  - Blood pressure systolic increased [Unknown]
  - Weight increased [Unknown]

NARRATIVE: CASE EVENT DATE: 20240425
